FAERS Safety Report 12965206 (Version 1)
Quarter: 2016Q4

REPORT INFORMATION
  Report Type: Spontaneous
  Country: IT (occurrence: IT)
  Receive Date: 20161122
  Receipt Date: 20161122
  Transmission Date: 20170207
  Serious: Yes (Hospitalization)
  Sender: FDA-Public Use
  Company Number: IT-MYLANLABS-2016M1048978

PATIENT

DRUGS (7)
  1. CYCLOPHOSPHAMIDE. [Concomitant]
     Active Substance: CYCLOPHOSPHAMIDE
     Indication: METAPLASTIC BREAST CARCINOMA
     Dosage: UNK
     Dates: start: 20130709, end: 20160128
  2. VINORELBINE [Suspect]
     Active Substance: VINORELBINE\VINORELBINE TARTRATE
     Dosage: 55 MG/M2, CYCLE
     Route: 048
     Dates: start: 20160129, end: 20160501
  3. CAPECITABINE. [Suspect]
     Active Substance: CAPECITABINE
     Indication: METAPLASTIC BREAST CARCINOMA
     Dosage: 1500 MG, CYCLE
     Route: 048
     Dates: start: 20130709, end: 20160128
  4. CAPECITABINE. [Suspect]
     Active Substance: CAPECITABINE
     Dosage: 2000 MG, CYCLE
     Dates: start: 20160129, end: 20160501
  5. VINORELBINE [Suspect]
     Active Substance: VINORELBINE\VINORELBINE TARTRATE
     Dosage: 44 MG/M2, CYCLE
     Route: 048
     Dates: start: 20160502
  6. CAPECITABINE. [Suspect]
     Active Substance: CAPECITABINE
     Dosage: 1600 MG, CYCLE
     Dates: start: 20160502
  7. VINORELBINE [Suspect]
     Active Substance: VINORELBINE\VINORELBINE TARTRATE
     Indication: METAPLASTIC BREAST CARCINOMA
     Dosage: 40 MG, QOD
     Route: 048
     Dates: start: 20130709, end: 20160128

REACTIONS (1)
  - Diverticulitis [Recovered/Resolved]
